FAERS Safety Report 6309388-8 (Version None)
Quarter: 2009Q3

REPORT INFORMATION
  Report Type: 
  Country: None (occurrence: None)
  Receive Date: 20090814
  Receipt Date: 20090802
  Transmission Date: 20100115
  Serious: Yes (Other)
  Sender: FDA-Public Use
  Company Number: US-ROCHE-647797

PATIENT
  Sex: Female

DRUGS (4)
  1. PEGASYS [Suspect]
     Dosage: FORM: PRE-FILLED SYRINGE
     Route: 065
     Dates: start: 20080730, end: 20090720
  2. RIBAVIRIN [Suspect]
     Dosage: DIVIDED DOSES
     Route: 065
     Dates: start: 20080730, end: 20090720
  3. NORVASC [Concomitant]
     Indication: HYPERTENSION
     Dosage: DOSAGE RECEIVED DAILY
  4. DIOVAN [Concomitant]
     Indication: HYPERTENSION
     Dosage: DOSAGE RECEIVED DAILY

REACTIONS (5)
  - ALOPECIA [None]
  - BLOOD PRESSURE FLUCTUATION [None]
  - NAUSEA [None]
  - PALPITATIONS [None]
  - RASH [None]
